FAERS Safety Report 26112688 (Version 1)
Quarter: 2025Q4

REPORT INFORMATION
  Report Type: Spontaneous
  Country: EU (occurrence: EU)
  Receive Date: 20251202
  Receipt Date: 20251202
  Transmission Date: 20260119
  Serious: Yes (Life-Threatening, Other)
  Sender: MYLAN
  Company Number: None

PATIENT
  Age: 69 Year
  Sex: Male

DRUGS (4)
  1. KETOPROFEN [Suspect]
     Active Substance: KETOPROFEN
     Indication: Product used for unknown indication
     Dosage: 1 DOSAGE FORM, TOTAL
     Dates: start: 20250118, end: 20250118
  2. KETOPROFEN [Suspect]
     Active Substance: KETOPROFEN
     Dosage: 1 DOSAGE FORM, TOTAL
     Route: 048
     Dates: start: 20250118, end: 20250118
  3. KETOPROFEN [Suspect]
     Active Substance: KETOPROFEN
     Dosage: 1 DOSAGE FORM, TOTAL
     Route: 048
     Dates: start: 20250118, end: 20250118
  4. KETOPROFEN [Suspect]
     Active Substance: KETOPROFEN
     Dosage: 1 DOSAGE FORM, TOTAL
     Dates: start: 20250118, end: 20250118

REACTIONS (2)
  - Anaphylactic shock [Recovered/Resolved]
  - Loss of consciousness [Recovered/Resolved]

NARRATIVE: CASE EVENT DATE: 20250118
